FAERS Safety Report 13070247 (Version 4)
Quarter: 2017Q1

REPORT INFORMATION
  Report Type: Report from Study
  Country: US (occurrence: US)
  Receive Date: 20161228
  Receipt Date: 20170213
  Transmission Date: 20170428
  Serious: Yes (Other)
  Sender: FDA-Public Use
  Company Number: US-AMGEN-USASP2016183643

PATIENT
  Age: 51 Year
  Sex: Female

DRUGS (2)
  1. METHOTREXATE. [Suspect]
     Active Substance: METHOTREXATE
     Indication: PRODUCT USED FOR UNKNOWN INDICATION
     Dosage: UNK
     Route: 065
  2. ENBREL [Suspect]
     Active Substance: ETANERCEPT
     Indication: ANKYLOSING SPONDYLITIS
     Dosage: UNK
     Route: 065

REACTIONS (17)
  - Palliative care [Unknown]
  - Blood cholesterol increased [Not Recovered/Not Resolved]
  - Blood disorder [Unknown]
  - Weight increased [Unknown]
  - Cardiac disorder [Unknown]
  - Depression [Unknown]
  - Food intolerance [Unknown]
  - Drug intolerance [Unknown]
  - Mobility decreased [Unknown]
  - Blood pressure increased [Unknown]
  - Bone disorder [Unknown]
  - Malaise [Unknown]
  - Gastrointestinal disorder [Unknown]
  - Body temperature decreased [Unknown]
  - Inflammation [Unknown]
  - Dyspnoea [Unknown]
  - Arthropathy [Unknown]
